FAERS Safety Report 7611566 (Version 3)
Quarter: 2013Q2

REPORT INFORMATION
  Report Type: Report from Study
  Country: MX (occurrence: MX)
  Receive Date: 20100929
  Receipt Date: 20130531
  Transmission Date: 20140414
  Serious: Yes (Hospitalization)
  Sender: FDA-Public Use
  Company Number: PHHY2010MX62146

PATIENT
  Age: 70 Year
  Sex: Female

DRUGS (2)
  1. EXFORGE [Suspect]
     Indication: HYPERTENSION
     Dosage: 1 DF, 160 MG VALS AND 5 MG AMLO
     Route: 048
     Dates: start: 20100506
  2. BI-EUGLUCON [Concomitant]
     Indication: DIABETES MELLITUS
     Dosage: 1 DF, 5 MG GLIB AND 500 MG METF
     Route: 048
     Dates: start: 1980

REACTIONS (3)
  - Musculoskeletal stiffness [Recovered/Resolved]
  - Asphyxia [Recovered/Resolved]
  - Hypertension [Recovered/Resolved]
